FAERS Safety Report 5621076-X (Version None)
Quarter: 2008Q1

REPORT INFORMATION
  Report Type: 
  Country: None (occurrence: None)
  Receive Date: 20080114
  Receipt Date: 20061220
  Transmission Date: 20080703
  Serious: Yes (Hospitalization, Disabling)
  Sender: FDA-Public Use
  Company Number: A03200607623

PATIENT
  Sex: Male

DRUGS (4)
  1. PLAVIX [Suspect]
     Indication: CATHETERISATION CARDIAC
     Dosage: ORAL
     Route: 048
     Dates: start: 20050701
  2. PLAVIX [Suspect]
     Indication: STENT PLACEMENT
     Dosage: ORAL
     Route: 048
     Dates: start: 20050701
  3. ASPIRIN [Suspect]
     Indication: CATHETERISATION CARDIAC
     Dosage: ORAL
     Route: 048
     Dates: start: 20050701
  4. ASPIRIN [Suspect]
     Indication: STENT PLACEMENT
     Dosage: ORAL
     Route: 048
     Dates: start: 20050701

REACTIONS (3)
  - LOSS OF CONSCIOUSNESS [None]
  - SUBARACHNOID HAEMORRHAGE [None]
  - VOMITING [None]
